FAERS Safety Report 9016125 (Version 2)
Quarter: 2013Q1

REPORT INFORMATION
  Report Type: Report from Study
  Country: KR (occurrence: KR)
  Receive Date: 20130116
  Receipt Date: 20130122
  Transmission Date: 20140127
  Serious: Yes (Death)
  Sender: FDA-Public Use
  Company Number: KR-ABBOTT-13P-090-1035207-00

PATIENT
  Sex: Male

DRUGS (2)
  1. KALETRA TABLETS [Suspect]
     Indication: HIV INFECTION
     Route: 048
     Dates: start: 20100223, end: 20100227
  2. 3TC/AZT [Concomitant]
     Indication: ANTIRETROVIRAL THERAPY
     Dates: start: 20100223, end: 20100227

REACTIONS (1)
  - Pneumocystis jirovecii pneumonia [Fatal]
